FAERS Safety Report 12492721 (Version 4)
Quarter: 2016Q4

REPORT INFORMATION
  Report Type: Report from Study
  Country: JP (occurrence: JP)
  Receive Date: 20160623
  Receipt Date: 20161027
  Transmission Date: 20170207
  Serious: Yes (Hospitalization)
  Sender: FDA-Public Use
  Company Number: JP-DSJP-DSJ-2016-120294

PATIENT
  Age: 68 Year
  Sex: Female
  Weight: 59 kg

DRUGS (6)
  1. DIART [Concomitant]
     Active Substance: AZOSEMIDE
     Dosage: 60MG/DAY
     Route: 048
  2. JANUVIA [Concomitant]
     Active Substance: SITAGLIPTIN PHOSPHATE
     Dosage: 50MG/DAY
     Route: 048
  3. EDOXABAN [Suspect]
     Active Substance: EDOXABAN TOSYLATE
     Indication: ATRIAL FIBRILLATION
     Dosage: 30 MG, QD
     Route: 048
     Dates: start: 20150925, end: 20151115
  4. FAMOTIDINE. [Concomitant]
     Active Substance: FAMOTIDINE
     Dosage: 10MG/DAY
     Route: 048
  5. NICORANDIL [Concomitant]
     Active Substance: NICORANDIL
     Dosage: 15MG/DAY
     Route: 048
  6. GOREISAN                           /08015701/ [Concomitant]
     Active Substance: HERBALS
     Dosage: 7.5MG/DAY
     Route: 048
     Dates: start: 20151002

REACTIONS (1)
  - Hepatic function abnormal [Unknown]

NARRATIVE: CASE EVENT DATE: 20151115
